FAERS Safety Report 8696695 (Version 4)
Quarter: 2013Q2

REPORT INFORMATION
  Report Type: Spontaneous
  Country: BR (occurrence: BR)
  Receive Date: 20120801
  Receipt Date: 20130403
  Transmission Date: 20140414
  Serious: Yes (Life-Threatening, Hospitalization, Other)
  Sender: FDA-Public Use
  Company Number: BR-BAYER-2012-073852

PATIENT
  Age: 33 Year
  Sex: Female

DRUGS (4)
  1. QLAIRA [Suspect]
     Indication: CONTRACEPTION
     Dosage: 1 DF, QD
     Route: 048
     Dates: start: 201204, end: 20120720
  2. ANTIBIOTICS [Interacting]
     Indication: CYSTITIS
  3. CONTRAST MEDIA [Concomitant]
     Dosage: UNK
     Route: 048
     Dates: start: 20120720, end: 20120720
  4. CONTRAST MEDIA [Concomitant]
     Dosage: UNK
     Route: 042
     Dates: start: 20120720, end: 20120720

REACTIONS (6)
  - Ruptured ectopic pregnancy [Recovered/Resolved]
  - Pain [Recovered/Resolved]
  - Acute abdomen [Recovered/Resolved]
  - Cystitis [None]
  - Metrorrhagia [None]
  - Procedural haemorrhage [None]
